FAERS Safety Report 6762346-1 (Version None)
Quarter: 2010Q2

REPORT INFORMATION
  Report Type: 
  Country: None (occurrence: None)
  Receive Date: 20100609
  Receipt Date: 20100603
  Transmission Date: 20101027
  Serious: Yes (Hospitalization, Other)
  Sender: FDA-Public Use
  Company Number: US-ROCHE-678482

PATIENT
  Sex: Male
  Weight: 74.8 kg

DRUGS (2)
  1. ACCUTANE [Suspect]
     Indication: ACNE
     Route: 048
     Dates: start: 20010928, end: 20020315
  2. ALLEGRA [Concomitant]

REACTIONS (11)
  - ABDOMINAL ABSCESS [None]
  - ANAL ABSCESS [None]
  - ANAL FISSURE [None]
  - ANAL FISTULA [None]
  - BACK PAIN [None]
  - CROHN'S DISEASE [None]
  - GASTROINTESTINAL INJURY [None]
  - HAEMANGIOMA [None]
  - ILEUS [None]
  - INFLAMMATORY BOWEL DISEASE [None]
  - NEPHROLITHIASIS [None]
